FAERS Safety Report 12075029 (Version 1)
Quarter: 2016Q1

REPORT INFORMATION
  Report Type: Spontaneous
  Country: US (occurrence: US)
  Receive Date: 20160212
  Receipt Date: 20160212
  Transmission Date: 20160526
  Serious: No
  Sender: FDA-Public Use
  Company Number: US-GLAXOSMITHKLINE-US2016019355

PATIENT
  Age: 79 Year
  Sex: Female

DRUGS (1)
  1. NICODERM CQ [Suspect]
     Active Substance: NICOTINE
     Indication: SMOKING CESSATION THERAPY
     Dosage: 14 MG, UNK
     Dates: start: 201601

REACTIONS (6)
  - Application site reaction [Recovered/Resolved]
  - Application site pruritus [Recovered/Resolved]
  - Application site papules [Recovered/Resolved]
  - Application site rash [Recovered/Resolved]
  - Application site vesicles [Recovered/Resolved]
  - Application site erythema [Not Recovered/Not Resolved]

NARRATIVE: CASE EVENT DATE: 201601
